FAERS Safety Report 23226240 (Version 2)
Quarter: 2023Q4

REPORT INFORMATION
  Report Type: Report from Study
  Country: US (occurrence: US)
  Receive Date: 20231124
  Receipt Date: 20231214
  Transmission Date: 20240109
  Serious: Yes (Hospitalization)
  Sender: FDA-Public Use
  Company Number: US-ABBVIE-5510199

PATIENT
  Sex: Female

DRUGS (1)
  1. VENCLEXTA [Suspect]
     Active Substance: VENETOCLAX
     Indication: Product used for unknown indication
     Dosage: TAKE 1 TABLET BY MOUTH DAILY WITH FOOD AND WATER FOR 14 DAYS ON THEN 14 DAYS OFF?STRENGTH: 50MG (...
     Route: 048

REACTIONS (6)
  - Haematochezia [Unknown]
  - Poor quality sleep [Unknown]
  - Pain [Unknown]
  - Nausea [Not Recovered/Not Resolved]
  - Asthenia [Unknown]
  - Anxiety [Unknown]
